FAERS Safety Report 5524468-2 (Version None)
Quarter: 2007Q4

REPORT INFORMATION
  Report Type: 
  Country: None (occurrence: None)
  Receive Date: 20071122
  Receipt Date: 20071112
  Transmission Date: 20080405
  Serious: Yes (Other)
  Sender: FDA-Public Use
  Company Number: PHFR2007GB03314

PATIENT
  Sex: Male

DRUGS (1)
  1. RITALIN [Suspect]
     Dosage: 45MG DAILY
     Route: 065

REACTIONS (3)
  - LACTOSE INTOLERANCE [None]
  - METABOLIC DISORDER [None]
  - UNDERWEIGHT [None]
